FAERS Safety Report 13292518 (Version 1)
Quarter: 2017Q1

REPORT INFORMATION
  Report Type: Spontaneous
  Country: US (occurrence: US)
  Receive Date: 20170303
  Receipt Date: 20170303
  Transmission Date: 20170428
  Serious: No
  Sender: FDA-Public Use
  Company Number: US-ELI_LILLY_AND_COMPANY-US201702009841

PATIENT
  Sex: Female

DRUGS (4)
  1. HUMULIN R [Suspect]
     Active Substance: INSULIN HUMAN
     Dosage: 15 U, QD
     Route: 065
     Dates: start: 201608
  2. TRULICITY [Suspect]
     Active Substance: DULAGLUTIDE
     Indication: DIABETES MELLITUS
     Dosage: 0.75 MG, UNKNOWN
     Route: 065
     Dates: start: 20170217
  3. HUMULIN R [Suspect]
     Active Substance: INSULIN HUMAN
     Indication: DIABETES MELLITUS
     Dosage: 30 U, EACH MORNING
     Route: 065
     Dates: start: 201608
  4. HUMULIN R [Suspect]
     Active Substance: INSULIN HUMAN
     Dosage: 30 U, EACH EVENING
     Route: 065
     Dates: start: 201608

REACTIONS (39)
  - Somnolence [Unknown]
  - Headache [Unknown]
  - Feeling jittery [Unknown]
  - Anger [Unknown]
  - Bladder disorder [Unknown]
  - Myalgia [Unknown]
  - Dry eye [Unknown]
  - Nervousness [Unknown]
  - Asthenia [Unknown]
  - Abdominal discomfort [Unknown]
  - Headache [Unknown]
  - Anxiety [Unknown]
  - Eyelid skin dryness [Unknown]
  - Gastrointestinal pain [Unknown]
  - Vomiting [Unknown]
  - Weight increased [Unknown]
  - Insomnia [Unknown]
  - Hiccups [Unknown]
  - Dysphagia [Unknown]
  - Vision blurred [Unknown]
  - Mood altered [Unknown]
  - Pain [Unknown]
  - Hypokinesia [Unknown]
  - Visual impairment [Unknown]
  - Cystitis interstitial [Unknown]
  - Nausea [Not Recovered/Not Resolved]
  - Diarrhoea [Unknown]
  - Confusional state [Unknown]
  - Irritability [Unknown]
  - Hunger [Unknown]
  - Stress [Unknown]
  - Eructation [Unknown]
  - Drug ineffective [Unknown]
  - Dizziness [Not Recovered/Not Resolved]
  - Feeling abnormal [Unknown]
  - Bladder injury [Unknown]
  - Alopecia [Unknown]
  - Malaise [Unknown]
  - Fluid retention [Unknown]

NARRATIVE: CASE EVENT DATE: 201608
